FAERS Safety Report 24565330 (Version 1)
Quarter: 2024Q4

REPORT INFORMATION
  Report Type: Spontaneous
  Country: ZA (occurrence: ZA)
  Receive Date: 20241030
  Receipt Date: 20241030
  Transmission Date: 20250115
  Serious: Yes (Death, Hospitalization)
  Sender: VIFOR (INTERNATIONAL) INC.
  Company Number: ZA-ROCHE-10000110745

PATIENT
  Age: 60 Year
  Sex: Female

DRUGS (1)
  1. MIRCERA [Suspect]
     Active Substance: METHOXY POLYETHYLENE GLYCOL-EPOETIN BETA
     Indication: Product used for unknown indication

REACTIONS (3)
  - Death [Fatal]
  - Decubitus ulcer [Unknown]
  - Sepsis [Unknown]

NARRATIVE: CASE EVENT DATE: 20240901
